FAERS Safety Report 7488360-9 (Version None)
Quarter: 2011Q2

REPORT INFORMATION
  Report Type: 
  Country: None (occurrence: None)
  Receive Date: 20110518
  Receipt Date: 20110504
  Transmission Date: 20111010
  Serious: Yes (Hospitalization)
  Sender: FDA-Public Use
  Company Number: CA-JNJFOC-20100701898

PATIENT
  Sex: Male
  Weight: 68 kg

DRUGS (7)
  1. ASPIRIN [Concomitant]
     Indication: ILL-DEFINED DISORDER
     Route: 048
  2. IMURAN [Concomitant]
     Indication: ILL-DEFINED DISORDER
     Route: 048
  3. VITAMIN D [Concomitant]
     Indication: ILL-DEFINED DISORDER
     Dosage: 400 UNITS.
     Route: 048
  4. WARFARIN SODIUM [Concomitant]
     Indication: ILL-DEFINED DISORDER
     Route: 048
  5. ENTOCORT EC [Concomitant]
     Indication: ILL-DEFINED DISORDER
     Route: 048
  6. REMICADE [Suspect]
     Indication: CROHN'S DISEASE
     Route: 042
     Dates: start: 20090223
  7. FOLIC ACID [Concomitant]
     Indication: ILL-DEFINED DISORDER
     Route: 048

REACTIONS (1)
  - GASTROINTESTINAL HAEMORRHAGE [None]
